FAERS Safety Report 17978551 (Version 3)
Quarter: 2022Q2

REPORT INFORMATION
  Report Type: Spontaneous
  Country: US (occurrence: US)
  Receive Date: 20200703
  Receipt Date: 20220429
  Transmission Date: 20220720
  Serious: Yes (Hospitalization, Other)
  Sender: FDA-Public Use
  Company Number: US-GLENMARK PHARMACEUTICALS-2020GMK048484

PATIENT
  Age: 55 Year
  Sex: Male

DRUGS (3)
  1. TRIAMCINOLONE ACETONIDE [Interacting]
     Active Substance: TRIAMCINOLONE ACETONIDE
     Indication: Synovial cyst
     Dosage: 2 DOSAGE FORM IN TOTAL OVER NEXT TWO MONTHS
     Route: 014
  2. FLUTICASONE PROPIONATE [Interacting]
     Active Substance: FLUTICASONE PROPIONATE
     Indication: Nasal congestion
     Dosage: UNK; USED INTERMITTENTLY FOR 9 DAYS AFTER DISCHARGE (FORMULATION: NASAL SPRAY)
     Route: 065
  3. GENVOYA [Interacting]
     Active Substance: COBICISTAT\ELVITEGRAVIR\EMTRICITABINE\TENOFOVIR ALAFENAMIDE FUMARATE
     Indication: HIV infection
     Dosage: UNK
     Route: 065

REACTIONS (8)
  - Pulmonary embolism [Recovering/Resolving]
  - Deep vein thrombosis [Recovering/Resolving]
  - Ulcer [Recovering/Resolving]
  - Drug interaction [Unknown]
  - Localised infection [Recovering/Resolving]
  - Cushing^s syndrome [Recovering/Resolving]
  - Hypothalamic pituitary adrenal axis suppression [Recovering/Resolving]
  - Drug level increased [Recovering/Resolving]
